FAERS Safety Report 4571186-3 (Version None)
Quarter: 2005Q1

REPORT INFORMATION
  Report Type: 
  Country: None (occurrence: None)
  Receive Date: 20050202
  Receipt Date: 20050120
  Transmission Date: 20050727
  Serious: Yes (Hospitalization)
  Sender: FDA-Public Use
  Company Number: 2005018015

PATIENT
  Sex: Male

DRUGS (3)
  1. VIRACEPT [Suspect]
     Indication: HIV TEST POSITIVE
     Dosage: ORAL
     Route: 048
     Dates: end: 20010708
  2. ZIDOVUDINE W/LAMIVUDINE (LAMIVUDINE, ZIDOVUDINE) [Suspect]
     Indication: HIV TEST POSITIVE
     Dosage: ORAL
     Route: 048
     Dates: end: 20010708
  3. ZIDOVUDINE [Suspect]
     Indication: HIV INFECTION
     Dosage: UNKNOWN

REACTIONS (7)
  - AUTOIMMUNE DISORDER [None]
  - DRUG EFFECT DECREASED [None]
  - DRUG EXPOSURE DURING PREGNANCY [None]
  - EYE DISORDER [None]
  - EYELID PTOSIS [None]
  - MYASTHENIC SYNDROME [None]
  - STRABISMUS [None]
